FAERS Safety Report 11209588 (Version 1)
Quarter: 2015Q2

REPORT INFORMATION
  Report Type: Report from Study
  Country: FR (occurrence: FR)
  Receive Date: 20150622
  Receipt Date: 20150622
  Transmission Date: 20150821
  Serious: Yes (Death)
  Sender: FDA-Public Use
  Company Number: FR-SA-2015SA070511

PATIENT
  Age: 18 Year
  Sex: Female

DRUGS (3)
  1. NEUPOGEN [Concomitant]
     Active Substance: FILGRASTIM
     Route: 048
  2. ANTI-THYMOCYTE GLOBULIN (RABBIT)/RABBIT ANTI-HUMAN THYMOCYTE IMMUNOGLOBULIN [Suspect]
     Active Substance: LAPINE T-LYMPHOCYTE IMMUNE GLOBULIN
     Indication: BONE MARROW FAILURE
     Route: 042
     Dates: start: 20131119, end: 20131119
  3. DOPAMINE [Concomitant]
     Active Substance: DOPAMINE\DOPAMINE HYDROCHLORIDE
     Route: 048

REACTIONS (5)
  - Renal impairment [None]
  - Acute pulmonary oedema [None]
  - Bone pain [None]
  - Blood pressure increased [None]
  - Respiratory distress [Fatal]

NARRATIVE: CASE EVENT DATE: 20150109
